FAERS Safety Report 8322302-9 (Version None)
Quarter: 2012Q2

REPORT INFORMATION
  Report Type: 
  Country: None (occurrence: None)
  Receive Date: 20120430
  Receipt Date: 20120426
  Transmission Date: 20120825
  Serious: Yes (Death, Other)
  Sender: FDA-Public Use
  Company Number: PHHY2011DE79766

PATIENT
  Sex: Male
  Weight: 57 kg

DRUGS (6)
  1. ZOMETA [Suspect]
     Indication: METASTASES TO BONE
     Dosage: 4 MG PER 5 ML
     Route: 042
     Dates: start: 20110409, end: 20110730
  2. DOXORUBICIN HCL [Concomitant]
     Indication: BONE SARCOMA
     Dosage: 46.5 MG/ DAY 1,2,3,Q22
     Route: 042
     Dates: start: 20110503, end: 20110728
  3. DOXORUBICIN HCL [Concomitant]
     Dosage: 45 MG, DAILY
     Route: 042
     Dates: start: 20110823, end: 20110823
  4. ZOMETA [Suspect]
     Dosage: 4 MG PER 5 ML
     Route: 042
     Dates: start: 20110730, end: 20110730
  5. TRAMADOL HYDROCHLORIDE [Concomitant]
     Indication: PAIN
     Dosage: 200 MG, DAILY
     Route: 048
     Dates: start: 20110611
  6. MORPHINE SULFATE [Concomitant]
     Dosage: 30 MG, DAILY
     Route: 048
     Dates: start: 20110823

REACTIONS (5)
  - RESPIRATORY ARREST [None]
  - HYPOPHAGIA [None]
  - PNEUMONIA [None]
  - WEIGHT DECREASED [None]
  - CANDIDIASIS [None]
